FAERS Safety Report 6519320-X (Version None)
Quarter: 2009Q4

REPORT INFORMATION
  Report Type: 
  Country: None (occurrence: None)
  Receive Date: 20091224
  Receipt Date: 20091224
  Transmission Date: 20100525
  Serious: No
  Sender: FDA-Public Use
  Company Number: None

PATIENT
  Age: 68 Year
  Sex: Male
  Weight: 111 kg

DRUGS (1)
  1. NAPROXEN [Suspect]
     Indication: PAIN
     Dosage: 500 MG BID PO
     Route: 048
     Dates: start: 20090813, end: 20091208

REACTIONS (5)
  - ABSCESS [None]
  - ANAEMIA [None]
  - ARTHRITIS BACTERIAL [None]
  - BURSITIS [None]
  - GASTRIC HAEMORRHAGE [None]
